FAERS Safety Report 9448087 (Version 1)
Quarter: 2013Q3

REPORT INFORMATION
  Report Type: Spontaneous
  Country: CA (occurrence: None)
  Receive Date: 20130806
  Receipt Date: 20130806
  Transmission Date: 20140515
  Serious: Yes (Life-Threatening)
  Sender: FDA-Public Use
  Company Number: 2013AL000468

PATIENT
  Age: 94 Year
  Sex: Female
  Weight: 54 kg

DRUGS (21)
  1. MACROBID [Suspect]
     Indication: PRODUCT USED FOR UNKNOWN INDICATION
     Route: 048
  2. PLAVIX [Suspect]
     Indication: PRODUCT USED FOR UNKNOWN INDICATION
     Route: 048
  3. SYSTANE LUBRICANT [Concomitant]
  4. ACEBUTOLOL [Concomitant]
  5. UNSPECIFIED INGREDIENT [Concomitant]
  6. VENLAFAXINE [Concomitant]
  7. UNSPECIFIED INGREDIENT [Concomitant]
  8. SEROQUEL [Concomitant]
  9. ATIVAN [Concomitant]
  10. LUMIGAN [Concomitant]
  11. XALATAN [Concomitant]
  12. COLACE [Concomitant]
  13. SENOKOT [Concomitant]
  14. SYNTHROID [Concomitant]
  15. EMO CORT [Concomitant]
  16. CORTATE/000142201/ [Concomitant]
  17. SYNTHROID [Concomitant]
  18. EMO CORT [Concomitant]
  19. CORTATE /00014602 [Concomitant]
  20. D-TABS [Concomitant]
  21. ACTONEL [Concomitant]

REACTIONS (3)
  - Pancytopenia [None]
  - Drug level increased [None]
  - Toxicity to various agents [None]
